FAERS Safety Report 8579616-7 (Version None)
Quarter: 2012Q3

REPORT INFORMATION
  Report Type: 
  Country: None (occurrence: None)
  Receive Date: 20120808
  Receipt Date: 20120730
  Transmission Date: 20120928
  Serious: Yes (Other)
  Sender: FDA-Public Use
  Company Number: BR-JNJFOC-20120800626

PATIENT
  Age: 41 Year
  Sex: Female
  Weight: 58 kg

DRUGS (1)
  1. ACETAMINOPHEN W/ CODEINE [Suspect]
     Indication: PROCEDURAL PAIN
     Route: 048
     Dates: start: 20120727, end: 20120728

REACTIONS (7)
  - DYSPNOEA [None]
  - GENERALISED ERYTHEMA [None]
  - NAUSEA [None]
  - BLISTER INFECTED [None]
  - SOMNOLENCE [None]
  - DYSPHONIA [None]
  - SWELLING [None]
